FAERS Safety Report 4477948-5 (Version None)
Quarter: 2004Q4

REPORT INFORMATION
  Report Type: 
  Country: None (occurrence: None)
  Receive Date: 20041012
  Receipt Date: 20040927
  Transmission Date: 20050328
  Serious: Yes (Death)
  Sender: FDA-Public Use
  Company Number: THYM-10266

PATIENT
  Age: 53 Year
  Sex: Male
  Weight: 94.3482 kg

DRUGS (2)
  1. THYMOGLOBULIN [Suspect]
     Indication: RENAL TRANSPLANT
     Dosage: 150 MG QD IV
     Route: 042
     Dates: start: 20040809, end: 20040809
  2. SOLU-MEDROL [Concomitant]

REACTIONS (11)
  - ALANINE AMINOTRANSFERASE INCREASED [None]
  - ASPARTATE AMINOTRANSFERASE INCREASED [None]
  - BLOOD LACTATE DEHYDROGENASE INCREASED [None]
  - BLOOD TRIGLYCERIDES INCREASED [None]
  - HYPOTENSION [None]
  - ISCHAEMIC HEPATITIS [None]
  - MEDICATION ERROR [None]
  - MYOCARDIAL INFARCTION [None]
  - PULMONARY OEDEMA [None]
  - PULSE ABSENT [None]
  - SEPSIS [None]
